FAERS Safety Report 20228808 (Version 1)
Quarter: 2021Q4

REPORT INFORMATION
  Report Type: Spontaneous
  Country: US (occurrence: US)
  Receive Date: 20211225
  Receipt Date: 20211225
  Transmission Date: 20220303
  Serious: No
  Sender: FDA-Public Use
  Company Number: US-SANOFI-00903550

PATIENT
  Age: 49 Year
  Sex: Male

DRUGS (1)
  1. AMBIEN [Suspect]
     Active Substance: ZOLPIDEM TARTRATE
     Indication: Sleep disorder
     Dosage: TAKING ONLY 1/2 OF THE TABLET (5 MG), OR EVEN A LITTLE LESS

REACTIONS (3)
  - Dizziness [Unknown]
  - Balance disorder [Unknown]
  - Product use issue [Unknown]
